FAERS Safety Report 23365015 (Version 1)
Quarter: 2024Q1

REPORT INFORMATION
  Report Type: Report from Study
  Country: CA (occurrence: CA)
  Receive Date: 20240104
  Receipt Date: 20240104
  Transmission Date: 20240410
  Serious: Yes (Other)
  Sender: FDA-Public Use
  Company Number: CA-SAMSUNG BIOEPIS-SB-2023-34965

PATIENT
  Age: 65 Year
  Sex: Female

DRUGS (1)
  1. HADLIMA [Suspect]
     Active Substance: ADALIMUMAB-BWWD
     Indication: Rheumatoid arthritis
     Dosage: 40 MG/0.8ML;
     Route: 065
     Dates: start: 20230603, end: 202312

REACTIONS (3)
  - Seizure [Unknown]
  - Dysarthria [Unknown]
  - Grip strength decreased [Unknown]
